FAERS Safety Report 16908465 (Version 3)
Quarter: 2019Q4

REPORT INFORMATION
  Report Type: Spontaneous
  Country: FR (occurrence: FR)
  Receive Date: 20191011
  Receipt Date: 20191101
  Transmission Date: 20200122
  Serious: Yes (Other)
  Sender: FDA-Public Use
  Company Number: FR-PFIZER INC-2019438260

PATIENT
  Age: 33 Year
  Sex: Female
  Weight: 76 kg

DRUGS (1)
  1. PROSTINE E2 [Suspect]
     Active Substance: DINOPROSTONE
     Indication: LABOUR INDUCTION
     Dosage: 2 MG, SINGLE
     Route: 067
     Dates: start: 201910, end: 201910

REACTIONS (2)
  - Uterine tachysystole [Recovered/Resolved]
  - Product quality issue [Recovered/Resolved]

NARRATIVE: CASE EVENT DATE: 201910
